FAERS Safety Report 5624875-3 (Version None)
Quarter: 2008Q1

REPORT INFORMATION
  Report Type: 
  Country: None (occurrence: None)
  Receive Date: 20080208
  Receipt Date: 20080124
  Transmission Date: 20080703
  Serious: Yes (Death, Hospitalization, Other)
  Sender: FDA-Public Use
  Company Number: 2007BI025183

PATIENT
  Age: 59 Year
  Sex: Female

DRUGS (7)
  1. TYSABRI [Suspect]
     Indication: MULTIPLE SCLEROSIS
     Dosage: 300 MG QM IV
     Route: 042
     Dates: start: 20070518, end: 20071029
  2. COUMADIN [Concomitant]
  3. ARICEPT [Concomitant]
  4. PROVIGIL [Concomitant]
  5. SEROQUEL [Concomitant]
  6. KEPPRA [Concomitant]
  7. BACLOFEN [Concomitant]

REACTIONS (4)
  - CEREBRAL HAEMORRHAGE [None]
  - EMBOLIC STROKE [None]
  - ISCHAEMIC STROKE [None]
  - THROMBOSIS [None]
